FAERS Safety Report 9326073 (Version 2)
Quarter: 2013Q3

REPORT INFORMATION
  Report Type: Report from Study
  Country: GB (occurrence: GB)
  Receive Date: 20130604
  Receipt Date: 20130814
  Transmission Date: 20140515
  Serious: Yes (Hospitalization)
  Sender: FDA-Public Use
  Company Number: GB-CELGENEUS-167-50794-13053461

PATIENT
  Age: 73 Year
  Sex: Female
  Weight: 53 kg

DRUGS (7)
  1. VIDAZA [Suspect]
     Indication: ACUTE MYELOID LEUKAEMIA
     Dosage: 125 MILLIGRAM
     Route: 058
     Dates: start: 20130204
  2. VORINOSTAT [Suspect]
     Indication: ACUTE MYELOID LEUKAEMIA
     Route: 048
     Dates: start: 20130206
  3. ACICLOVIR [Concomitant]
     Indication: ANTIVIRAL PROPHYLAXIS
     Route: 065
     Dates: start: 201302
  4. LEVOFLOXACIN [Concomitant]
     Indication: ANTIBIOTIC PROPHYLAXIS
     Route: 065
     Dates: start: 201211, end: 20130222
  5. ALLOPURINOL [Concomitant]
     Indication: PROPHYLAXIS
     Route: 065
     Dates: start: 201211
  6. LEVOTHYROXINE [Concomitant]
     Indication: HYPOTHYROIDISM
     Route: 065
     Dates: start: 1993
  7. ITRACONAZOLE [Concomitant]
     Indication: ANTIFUNGAL PROPHYLAXIS
     Route: 065
     Dates: start: 20130204

REACTIONS (4)
  - Urinary retention [Recovered/Resolved]
  - Sepsis [Recovered/Resolved]
  - Anaemia [Recovered/Resolved]
  - Myocardial infarction [Recovered/Resolved]
